FAERS Safety Report 5521566-4 (Version None)
Quarter: 2007Q4

REPORT INFORMATION
  Report Type: 
  Country: None (occurrence: None)
  Receive Date: 20071115
  Receipt Date: 20071028
  Transmission Date: 20080405
  Serious: Yes (Death)
  Sender: FDA-Public Use
  Company Number: 2007US002762

PATIENT
  Age: 66 Year
  Sex: Female

DRUGS (1)
  1. AMBISOME [Suspect]
     Indication: FUNGAL INFECTION
     Dosage: 5 MG/KG, UID/QD, IV NOS
     Route: 042

REACTIONS (4)
  - CEREBRAL FUNGAL INFECTION [None]
  - CIRCULATORY COLLAPSE [None]
  - DISEASE PROGRESSION [None]
  - RESPIRATORY FAILURE [None]
